FAERS Safety Report 13210966 (Version 5)
Quarter: 2017Q2

REPORT INFORMATION
  Report Type: Report from Study
  Country: CA (occurrence: CA)
  Receive Date: 20170210
  Receipt Date: 20170407
  Transmission Date: 20170830
  Serious: Yes (Hospitalization)
  Sender: FDA-Public Use
  Company Number: CA-SA-2016SA229814

PATIENT
  Age: 45 Year
  Sex: Female

DRUGS (12)
  1. METHYLPREDNISOLONE. [Concomitant]
     Active Substance: METHYLPREDNISOLONE
     Indication: PREMEDICATION
     Route: 042
     Dates: start: 20161212, end: 20161214
  2. ACETAMINOPHEN. [Concomitant]
     Active Substance: ACETAMINOPHEN
     Indication: PREMEDICATION
     Route: 048
     Dates: start: 20161212
  3. ACYCLOVIR. [Concomitant]
     Active Substance: ACYCLOVIR
     Indication: PREMEDICATION
     Route: 048
     Dates: start: 20161212
  4. REACTINE [Concomitant]
     Active Substance: CETIRIZINE HYDROCHLORIDE
     Indication: PREMEDICATION
     Route: 048
     Dates: start: 20161212, end: 20161214
  5. DIPHENHYDRAMINE. [Concomitant]
     Active Substance: DIPHENHYDRAMINE
     Indication: PREMEDICATION
     Route: 048
     Dates: start: 20161212, end: 20161214
  6. VITAMIN C [Concomitant]
     Active Substance: ASCORBIC ACID
     Route: 048
  7. RANITIDINE. [Concomitant]
     Active Substance: RANITIDINE
     Route: 048
     Dates: start: 20161212, end: 20161214
  8. ZOVIRAX [Concomitant]
     Active Substance: ACYCLOVIR
     Route: 048
     Dates: start: 20151201
  9. LEMTRADA [Suspect]
     Active Substance: ALEMTUZUMAB
     Indication: RELAPSING-REMITTING MULTIPLE SCLEROSIS
     Route: 041
     Dates: start: 20161212, end: 20161214
  10. AMANTADINE. [Concomitant]
     Active Substance: AMANTADINE HYDROCHLORIDE
     Route: 048
     Dates: start: 20130106
  11. VITAMIN B12 [Concomitant]
     Active Substance: CYANOCOBALAMIN
     Route: 048
  12. VITAMIN D [Concomitant]
     Active Substance: CHOLECALCIFEROL
     Route: 048
     Dates: start: 20121101

REACTIONS (22)
  - Pyrexia [Recovered/Resolved]
  - Rash papular [Recovered/Resolved]
  - Muscle spasticity [Recovered/Resolved]
  - Muscular weakness [Not Recovered/Not Resolved]
  - Fatigue [Recovered/Resolved]
  - Chills [Recovered/Resolved]
  - Dysphagia [Not Recovered/Not Resolved]
  - Insomnia [Recovered/Resolved]
  - Night sweats [Recovered/Resolved]
  - Rash [Recovered/Resolved]
  - Ear pruritus [Recovered/Resolved]
  - Headache [Recovered/Resolved]
  - Pruritus [Recovered/Resolved]
  - Urinary tract infection bacterial [Recovered/Resolved]
  - Feeling hot [Recovered/Resolved]
  - Erythema [Recovered/Resolved]
  - Fall [Unknown]
  - Pruritus [Not Recovered/Not Resolved]
  - Nausea [Recovered/Resolved]
  - Cough [Recovered/Resolved]
  - Ill-defined disorder [Recovered/Resolved]
  - Choking sensation [Not Recovered/Not Resolved]

NARRATIVE: CASE EVENT DATE: 2016
